FAERS Safety Report 8416180-7 (Version None)
Quarter: 2012Q2

REPORT INFORMATION
  Report Type: 
  Country: None (occurrence: None)
  Receive Date: 20120606
  Receipt Date: 20120601
  Transmission Date: 20120825
  Serious: Yes (Other)
  Sender: FDA-Public Use
  Company Number: PHHY2012AR047667

PATIENT
  Age: 69 Year
  Sex: Female

DRUGS (3)
  1. FLUTICASONE FUROATE [Concomitant]
  2. ONBREZ [Suspect]
     Indication: CHRONIC OBSTRUCTIVE PULMONARY DISEASE
  3. TIOTROPIUM [Concomitant]

REACTIONS (2)
  - AMAUROSIS [None]
  - INTRAOCULAR HAEMATOMA [None]
